FAERS Safety Report 8184528-7 (Version None)
Quarter: 2012Q1

REPORT INFORMATION
  Report Type: 
  Country: None (occurrence: None)
  Receive Date: 20120305
  Receipt Date: 20120221
  Transmission Date: 20120608
  Serious: Yes (Hospitalization, Other)
  Sender: FDA-Public Use
  Company Number: DE-CELGENEUS-062-21880-10111559

PATIENT
  Age: 65 Year
  Sex: Female
  Weight: 70 kg

DRUGS (17)
  1. AUGMENTIN '125' [Suspect]
     Indication: INFECTION PROPHYLAXIS
     Route: 065
     Dates: start: 20090610
  2. CALCIUM [Concomitant]
     Dosage: 500 UNKNOWN
     Route: 065
  3. TORSEMIDE [Concomitant]
     Dosage: 10 UNKNOWN
     Route: 065
  4. VALPROATE SODIUM [Concomitant]
     Route: 065
  5. REVLIMID [Suspect]
     Dosage: 2.5 MILLIGRAM
     Route: 048
     Dates: start: 20101001
  6. REVLIMID [Suspect]
     Dosage: 5 MILLIGRAM
     Route: 048
     Dates: start: 20090921, end: 20090921
  7. SULBACTAM [Suspect]
     Indication: NEUTROPENIC INFECTION
     Route: 065
  8. REVLIMID [Suspect]
     Dosage: 10 MILLIGRAM
     Route: 048
     Dates: start: 20090601
  9. PANTOPRAZOLE [Concomitant]
     Dosage: 20 UNKNOWN
     Route: 065
  10. VENLAFAXINE [Concomitant]
     Dosage: 225MG-150MG-0
     Route: 065
  11. REVLIMID [Suspect]
     Indication: MULTIPLE MYELOMA
     Dosage: 15 MILLIGRAM
     Route: 048
     Dates: start: 20090101
  12. BONDRONATE [Suspect]
     Indication: PANCYTOPENIA
     Route: 065
  13. DOXYCYCLINE [Suspect]
     Indication: INFECTION
     Route: 065
     Dates: start: 20090923
  14. FOLIC ACID [Concomitant]
     Dosage: 5 MILLIGRAM
     Route: 065
  15. OLANZAPINE [Concomitant]
     Dosage: 7.5 UNKNOWN
     Route: 065
  16. AMOXICILLIN [Suspect]
     Indication: NEUTROPENIC INFECTION
     Route: 065
  17. VALPROATE SODIUM [Concomitant]
     Dosage: 300MG-0-150MG
     Route: 065

REACTIONS (7)
  - PANCREATITIS NECROTISING [None]
  - COLITIS ISCHAEMIC [None]
  - PANCYTOPENIA [None]
  - LOWER GASTROINTESTINAL HAEMORRHAGE [None]
  - THROMBOPHLEBITIS [None]
  - LEUKOCYTOCLASTIC VASCULITIS [None]
  - ANAEMIA [None]
